FAERS Safety Report 5646215-6 (Version None)
Quarter: 2008Q1

REPORT INFORMATION
  Report Type: 
  Country: None (occurrence: None)
  Receive Date: 20080131
  Receipt Date: 20071203
  Transmission Date: 20080703
  Serious: No
  Sender: FDA-Public Use
  Company Number: 163-21880-07120133

PATIENT
  Age: 67 Year
  Sex: Male
  Weight: 77.1115 kg

DRUGS (14)
  1. REVLIMID [Suspect]
     Indication: PROSTATE CANCER
     Dosage: 5 MG, QOD, ORAL
     Route: 048
     Dates: start: 20071127
  2. THALOMID [Suspect]
     Indication: PROSTATE CANCER
     Dosage: 50 MG, QOD ALTERNATING WITH REVLIMID, ORAL
     Route: 048
     Dates: start: 20071127
  3. LEUKINE [Suspect]
     Indication: DRUG USE FOR UNKNOWN INDICATION
     Dosage: 500 MCG/ML, ORAL
     Route: 048
     Dates: start: 20071127
  4. AVODART [Concomitant]
  5. PROSCAR [Concomitant]
  6. LIPITOR [Concomitant]
  7. CELEBREX [Concomitant]
  8. ZETIA [Concomitant]
  9. OMACOR [Concomitant]
  10. ASCORBIC ACID [Concomitant]
  11. CENTRUM SILVER (CENTRUM SILVER) [Concomitant]
  12. CITRACAL PLUS D (CITRACAL + D) [Concomitant]
  13. ASPIRIN [Concomitant]
  14. FOLTX (TRIOBE) [Concomitant]

REACTIONS (5)
  - CHILLS [None]
  - DYSPNOEA [None]
  - HYPERHIDROSIS [None]
  - MYALGIA [None]
  - NAUSEA [None]
